FAERS Safety Report 6915131-1 (Version None)
Quarter: 2010Q3

REPORT INFORMATION
  Report Type: 
  Country: None (occurrence: None)
  Receive Date: 20100805
  Receipt Date: 20100805
  Transmission Date: 20110219
  Serious: Yes (Hospitalization)
  Sender: FDA-Public Use
  Company Number: None

PATIENT
  Sex: Female
  Weight: 78.5 kg

DRUGS (4)
  1. PHENERGAN 25MG [Suspect]
     Indication: NAUSEA
     Dosage: 25 MG QID PO
     Route: 048
  2. PHENERGAN 25MG [Suspect]
     Indication: VOMITING
     Dosage: 25 MG QID PO
     Route: 048
  3. ZOFRAN [Suspect]
     Indication: NAUSEA
     Dosage: 4 MG QDAY TO BID PO
     Route: 048
  4. ZOFRAN [Suspect]
     Indication: VOMITING
     Dosage: 4 MG QDAY TO BID PO
     Route: 048

REACTIONS (3)
  - BILIRUBIN CONJUGATED [None]
  - BLOOD BILIRUBIN INCREASED [None]
  - TRANSAMINASES INCREASED [None]
